FAERS Safety Report 25748684 (Version 2)
Quarter: 2025Q3

REPORT INFORMATION
  Report Type: Spontaneous
  Country: JP (occurrence: JP)
  Receive Date: 20250902
  Receipt Date: 20250903
  Transmission Date: 20251021
  Serious: Yes (Hospitalization, Other)
  Sender: ALEXION PHARMACEUTICALS
  Company Number: JP-ASTRAZENECA-202508JPN021345JP

PATIENT
  Age: 68 Year
  Sex: Female

DRUGS (1)
  1. SYMBICORT [Suspect]
     Active Substance: BUDESONIDE\FORMOTEROL FUMARATE DIHYDRATE
     Indication: Asthma
     Route: 065

REACTIONS (10)
  - Oxygen saturation decreased [Unknown]
  - Colitis ulcerative [Unknown]
  - Eosinophil count increased [Unknown]
  - Asthma [Unknown]
  - Anaphylactic reaction [Unknown]
  - Angina pectoris [Unknown]
  - Urticaria [Unknown]
  - Choking [Unknown]
  - Eye swelling [Unknown]
  - Productive cough [Unknown]
